FAERS Safety Report 11278648 (Version 1)
Quarter: 2015Q3

REPORT INFORMATION
  Report Type: Spontaneous
  Country: US (occurrence: None)
  Receive Date: 20150716
  Receipt Date: 20150716
  Transmission Date: 20151125
  Serious: Yes (Death, Life-Threatening, Hospitalization)
  Sender: FDA-Public Use
  Company Number: None

PATIENT
  Age: 58 Year
  Sex: Male
  Weight: 67.6 kg

DRUGS (23)
  1. PREGABALIN. [Concomitant]
     Active Substance: PREGABALIN
  2. DEXAMETHASONE. [Concomitant]
     Active Substance: DEXAMETHASONE
  3. LORAZEPAM. [Concomitant]
     Active Substance: LORAZEPAM
  4. ALBUTEROL. [Concomitant]
     Active Substance: ALBUTEROL
  5. OMEPRAZOLE. [Concomitant]
     Active Substance: OMEPRAZOLE
  6. CHOLECALCIFEROL [Concomitant]
     Active Substance: CHOLECALCIFEROL
  7. POLYETHYLENE GLYCOL [Concomitant]
     Active Substance: POLYETHYLENE GLYCOLS
  8. METHYLPHENIDATE. [Concomitant]
     Active Substance: METHYLPHENIDATE
  9. LOVAZA [Concomitant]
     Active Substance: OMEGA-3-ACID ETHYL ESTERS
  10. ASPIRIN. [Concomitant]
     Active Substance: ASPIRIN
  11. MULTIVITAMIN [Concomitant]
     Active Substance: VITAMINS
  12. ZYKADIA [Suspect]
     Active Substance: CERITINIB
     Indication: LUNG ADENOCARCINOMA STAGE IV
     Route: 048
     Dates: start: 20150529, end: 20150531
  13. ENOXAPARIN [Concomitant]
     Active Substance: ENOXAPARIN
  14. GLUCOSAMINE + CHONDROITIN [Concomitant]
     Active Substance: CHONDROITIN SULFATE (BOVINE)\GLUCOSAMINE HYDROCHLORIDE
  15. VITAMIN E [Concomitant]
     Active Substance: .ALPHA.-TOCOPHEROL
  16. COENZYME Q10 [Concomitant]
     Active Substance: UBIDECARENONE
  17. IBUPROFEN. [Concomitant]
     Active Substance: IBUPROFEN
  18. OXYCODONE [Concomitant]
     Active Substance: OXYCODONE
  19. FLUTICASONE [Concomitant]
     Active Substance: FLUTICASONE\FLUTICASONE PROPIONATE
  20. SENNA [Concomitant]
     Active Substance: SENNA LEAF\SENNOSIDES\SENNOSIDES A AND B
  21. ONDANSETRON [Concomitant]
     Active Substance: ONDANSETRON
  22. LORATADINE. [Concomitant]
     Active Substance: LORATADINE
  23. DEXAMETHASONE. [Concomitant]
     Active Substance: DEXAMETHASONE

REACTIONS (4)
  - Hypoxia [None]
  - Dyspnoea exertional [None]
  - Inappropriate schedule of drug administration [None]
  - Dyspnoea [None]

NARRATIVE: CASE EVENT DATE: 20150601
